FAERS Safety Report 4685420-2 (Version None)
Quarter: 2005Q2

REPORT INFORMATION
  Report Type: 
  Country: None (occurrence: None)
  Receive Date: 20050608
  Receipt Date: 20050602
  Transmission Date: 20051028
  Serious: Yes (Life-Threatening)
  Sender: FDA-Public Use
  Company Number: US-MERCK-0506USA00602

PATIENT
  Age: 71 Year
  Sex: Female

DRUGS (2)
  1. VIOXX [Suspect]
     Indication: ARTHRITIS
     Route: 048
     Dates: start: 19970101, end: 20050101
  2. ESTROGENS (UNSPECIFIED) [Concomitant]
     Route: 065

REACTIONS (2)
  - RENAL DISORDER [None]
  - RENAL INJURY [None]
